FAERS Safety Report 8237612-3 (Version None)
Quarter: 2012Q1

REPORT INFORMATION
  Report Type: 
  Country: None (occurrence: None)
  Receive Date: 20120327
  Receipt Date: 20120323
  Transmission Date: 20120608
  Serious: Yes (Other)
  Sender: FDA-Public Use
  Company Number: JP-EISAI INC-E2020-10540-SPO-JP

PATIENT
  Age: 84 Year
  Sex: Male

DRUGS (12)
  1. CIBENOL [Concomitant]
     Indication: ATRIAL FIBRILLATION
     Route: 048
  2. CANDESARTAN CILEXETIL [Concomitant]
     Indication: HYPERTENSION
     Route: 048
  3. ARICEPT [Suspect]
     Route: 048
     Dates: start: 20120320, end: 20120322
  4. DUTASTERIDE [Concomitant]
     Route: 048
  5. TAMSULOSIN HCL [Concomitant]
     Route: 048
  6. RETICOLAN [Concomitant]
     Route: 048
  7. ALCENOL [Concomitant]
     Indication: HYPERTENSION
     Route: 048
  8. NITOGIS [Concomitant]
     Dosage: 81 MG
     Route: 048
  9. LANSORAL [Concomitant]
     Route: 048
  10. ALEROFF [Concomitant]
     Route: 048
  11. ARICEPT [Suspect]
     Indication: DEMENTIA ALZHEIMER'S TYPE
     Route: 048
     Dates: start: 20120306, end: 20120319
  12. GASTROM [Concomitant]
     Route: 048

REACTIONS (2)
  - VOMITING [None]
  - ELECTROCARDIOGRAM QT PROLONGED [None]
